FAERS Safety Report 6696010-4 (Version None)
Quarter: 2010Q2

REPORT INFORMATION
  Report Type: 
  Country: None (occurrence: None)
  Receive Date: 20100422
  Receipt Date: 20100407
  Transmission Date: 20101027
  Serious: Yes (Other)
  Sender: FDA-Public Use
  Company Number: AUR-APL-2010-00997

PATIENT
  Age: 71 Year
  Sex: Female
  Weight: 65 kg

DRUGS (3)
  1. CITALOPRAM HYDROBROMIDE [Suspect]
     Dosage: 20MG, ORAL
     Route: 048
     Dates: start: 20100212, end: 20100214
  2. FLUTICASONE INHALATION [Concomitant]
  3. SALMETEROL INHALATION [Concomitant]

REACTIONS (1)
  - ANGLE CLOSURE GLAUCOMA [None]
